FAERS Safety Report 23854747 (Version 1)
Quarter: 2024Q2

REPORT INFORMATION
  Report Type: Spontaneous
  Country: CA (occurrence: CA)
  Receive Date: 20240514
  Receipt Date: 20240514
  Transmission Date: 20240716
  Serious: Yes (Other)
  Sender: FDA-Public Use
  Company Number: CA-002147023-NVSC2024CA101496

PATIENT
  Age: 42 Year

DRUGS (5)
  1. CYCLOSPORINE [Suspect]
     Active Substance: CYCLOSPORINE
     Indication: Pityriasis rubra pilaris
     Dosage: 200 MG (1 EVERY 5 DAYS)
     Route: 065
  2. CYCLOSPORINE [Suspect]
     Active Substance: CYCLOSPORINE
     Dosage: 150 MG (1 EVERY 5 DAYS)
     Route: 065
  3. BETAMETHASONE [Suspect]
     Active Substance: BETAMETHASONE\BETAMETHASONE DIPROPIONATE
     Indication: Pityriasis rubra pilaris
     Dosage: UNK
     Route: 061
  4. PREDNISONE [Suspect]
     Active Substance: PREDNISONE
     Indication: Pityriasis rubra pilaris
     Dosage: 40 MG, QD
     Route: 048
  5. PREDNISONE [Suspect]
     Active Substance: PREDNISONE
     Dosage: 35 MG, QD
     Route: 048

REACTIONS (3)
  - Pityriasis rubra pilaris [Recovering/Resolving]
  - Dermatitis exfoliative generalised [Recovering/Resolving]
  - Therapeutic product ineffective [Recovering/Resolving]
